FAERS Safety Report 9613300 (Version 2)
Quarter: 2013Q4

REPORT INFORMATION
  Report Type: Spontaneous
  Country: US (occurrence: US)
  Receive Date: 20131010
  Receipt Date: 20131024
  Transmission Date: 20140711
  Serious: Yes (Hospitalization)
  Sender: FDA-Public Use
  Company Number: US-BAYER-2013-122222

PATIENT
  Age: 25 Year
  Sex: Female

DRUGS (8)
  1. OCELLA [Suspect]
  2. ADVAIR DISKUS [Concomitant]
  3. IBUPROFEN [Concomitant]
  4. MUCINEX DM [Concomitant]
  5. PROCHLORPERAZINE [Concomitant]
  6. KEPPRA [Concomitant]
  7. DUONEB [Concomitant]
  8. ALBUTEROL [Concomitant]

REACTIONS (2)
  - Pulmonary embolism [None]
  - Deep vein thrombosis [None]
